FAERS Safety Report 6220931-X (Version None)
Quarter: 2009Q2

REPORT INFORMATION
  Report Type: 
  Country: None (occurrence: None)
  Receive Date: 20090604
  Receipt Date: 20090519
  Transmission Date: 20091009
  Serious: Yes (Other)
  Sender: FDA-Public Use
  Company Number: B0576180A

PATIENT
  Sex: Male

DRUGS (4)
  1. LAPATINIB (FORMULATION UNKNOWN) [Suspect]
     Indication: HYPOPHARYNGEAL CANCER
     Dosage: ORAL
     Route: 048
  2. DOCETAXEL (DOCETAXEL) (FORMUATION UNKNOWN) [Suspect]
     Indication: LARYNGEAL CANCER
     Dosage: 60 MG/M2
  3. CISPLATIN (CISPLATIN) (FORMULATION UNKNOWN) [Suspect]
     Indication: HYPOPHARYNGEAL CANCER
     Dosage: 75 MG/M2
  4. FLUOROURACIL (FLUOROURACIL) (FORMULATION UNKNOWN) [Suspect]
     Indication: LARYNGEAL CANCER
     Dosage: 750 MG/M2

REACTIONS (3)
  - DEHYDRATION [None]
  - DIARRHOEA [None]
  - NEPHROPATHY TOXIC [None]
